FAERS Safety Report 6543706-0 (Version None)
Quarter: 2010Q1

REPORT INFORMATION
  Report Type: 
  Country: None (occurrence: None)
  Receive Date: 20100119
  Receipt Date: 20100119
  Transmission Date: 20100710
  Serious: Yes (Other)
  Sender: FDA-Public Use
  Company Number: None

PATIENT
  Age: 8 Year
  Sex: Female
  Weight: 26.3086 kg

DRUGS (2)
  1. CHILDREN TYLENOL STRAWBERRY LIQ CHILDREN MCNEILL [Suspect]
     Indication: HEADACHE
     Dosage: 2 TSP DAILY AS NEEDED PO
     Route: 048
     Dates: start: 20100105, end: 20100105
  2. CHILDREN TYLENOL STRAWBERRY LIQ CHILDREN MCNEILL [Suspect]
     Indication: RHINORRHOEA
     Dosage: 2 TSP DAILY AS NEEDED PO
     Route: 048
     Dates: start: 20100105, end: 20100105

REACTIONS (6)
  - ABDOMINAL PAIN UPPER [None]
  - DIARRHOEA [None]
  - ERYTHEMA [None]
  - MALAISE [None]
  - TREMOR [None]
  - VOMITING [None]
